FAERS Safety Report 18834204 (Version 1)
Quarter: 2021Q1

REPORT INFORMATION
  Report Type: Spontaneous
  Country: US (occurrence: US)
  Receive Date: 20210203
  Receipt Date: 20210203
  Transmission Date: 20210419
  Serious: No
  Sender: FDA-Public Use
  Company Number: US-ALLERGAN-2030724US

PATIENT
  Sex: Female

DRUGS (4)
  1. BOTOX COSMETIC [Suspect]
     Active Substance: ONABOTULINUMTOXINA
     Indication: PRODUCT USED FOR UNKNOWN INDICATION
     Dosage: UNK, SINGLE
     Route: 065
  2. RADIESSE [Suspect]
     Active Substance: TRIBASIC CALCIUM PHOSPHATE
     Indication: PRODUCT USED FOR UNKNOWN INDICATION
  3. UNKNOWN BLOOD PRESSURE MEDICATION [Concomitant]
     Active Substance: UNSPECIFIED INGREDIENT
     Indication: HYPERTENSION
     Route: 048
  4. JUVEDERM VOLUMA XC [Concomitant]
     Active Substance: HYALURONIC ACID\LIDOCAINE HYDROCHLORIDE
     Indication: PRODUCT USED FOR UNKNOWN INDICATION

REACTIONS (6)
  - Lip haemorrhage [Recovering/Resolving]
  - Injection site mass [Recovering/Resolving]
  - Infection [Recovering/Resolving]
  - Contusion [Recovering/Resolving]
  - Multiple use of single-use product [Unknown]
  - Rash [Recovering/Resolving]
